FAERS Safety Report 18191340 (Version 1)
Quarter: 2020Q3

REPORT INFORMATION
  Report Type: Spontaneous
  Country: KR (occurrence: KR)
  Receive Date: 20200825
  Receipt Date: 20200825
  Transmission Date: 20201103
  Serious: Yes (Other)
  Sender: FDA-Public Use
  Company Number: KR-MACLEODS PHARMACEUTICALS US LTD-MAC2020027775

PATIENT

DRUGS (9)
  1. ITRACONAZOLE. [Suspect]
     Active Substance: ITRACONAZOLE
     Dosage: UNK, 1 %
     Route: 061
  2. AMPHOTERICIN B. [Concomitant]
     Active Substance: AMPHOTERICIN B
     Indication: PRODUCT USED FOR UNKNOWN INDICATION
     Dosage: UNK, SYSTEMIC
     Route: 065
  3. TRIAMCINOLONE ACETONIDE. [Suspect]
     Active Substance: TRIAMCINOLONE ACETONIDE
     Indication: DIABETIC RETINAL OEDEMA
     Dosage: UNK UNK, SINGLE, POSTERIOR SUBTENON INJECTION, 23?GAUGE PINPOINT CANNULA, IN RIGHT EYE
     Route: 047
  4. ITRACONAZOLE. [Suspect]
     Active Substance: ITRACONAZOLE
     Dosage: 0.25 %, INJECTION
     Route: 057
  5. ITRACONAZOLE. [Suspect]
     Active Substance: ITRACONAZOLE
     Indication: PSEUDALLESCHERIA INFECTION
     Dosage: 200 MILLIGRAM, BID
     Route: 065
  6. OFLOXACIN. [Concomitant]
     Active Substance: OFLOXACIN
     Indication: PRODUCT USED FOR UNKNOWN INDICATION
     Dosage: UNK UNK, QID, EYE DROP
     Route: 047
  7. ITRACONAZOLE. [Suspect]
     Active Substance: ITRACONAZOLE
     Dosage: UNK, SYSTEMIC
     Route: 065
  8. OFLOXACIN. [Concomitant]
     Active Substance: OFLOXACIN
     Dosage: UNK UNK, QD. OINTMENT AT NIGHT
     Route: 047
  9. AMPHOTERICIN B. [Concomitant]
     Active Substance: AMPHOTERICIN B
     Dosage: UNK
     Route: 061

REACTIONS (5)
  - Vitreous opacities [Unknown]
  - Orbital infection [Recovered/Resolved]
  - Atrophy of globe [Unknown]
  - Retinal detachment [Unknown]
  - Condition aggravated [Unknown]
